FAERS Safety Report 21187582 (Version 1)
Quarter: 2022Q3

REPORT INFORMATION
  Report Type: Spontaneous
  Country: US (occurrence: US)
  Receive Date: 20220808
  Receipt Date: 20220808
  Transmission Date: 20221027
  Serious: Yes (Hospitalization)
  Sender: FDA-Public Use
  Company Number: US-ALVOGEN-2022-ALVOGEN-120708

PATIENT
  Age: 48 Year
  Sex: Female

DRUGS (4)
  1. MINOCYCLINE [Suspect]
     Active Substance: MINOCYCLINE HYDROCHLORIDE
     Indication: Pneumonia bacterial
  2. COLISTIN [Concomitant]
     Active Substance: COLISTIN
     Indication: Pneumonia bacterial
  3. AZTREONAM [Concomitant]
     Active Substance: AZTREONAM
     Indication: Pneumonia bacterial
  4. AVIBACTAM SODIUM\CEFTAZIDIME [Concomitant]
     Active Substance: AVIBACTAM SODIUM\CEFTAZIDIME
     Indication: Pneumonia bacterial

REACTIONS (1)
  - Pneumonia [Recovered/Resolved]
